FAERS Safety Report 8446427-2 (Version None)
Quarter: 2012Q2

REPORT INFORMATION
  Report Type: 
  Country: None (occurrence: None)
  Receive Date: 20120618
  Receipt Date: 20120320
  Transmission Date: 20120825
  Serious: No
  Sender: FDA-Public Use
  Company Number: US-TEVA-328834USA

PATIENT
  Age: 63 Year
  Sex: Female

DRUGS (1)
  1. ACTIQ [Suspect]
     Indication: MUSCULAR DYSTROPHY
     Route: 002

REACTIONS (4)
  - DIZZINESS [None]
  - NAUSEA [None]
  - OFF LABEL USE [None]
  - TREATMENT NONCOMPLIANCE [None]
